FAERS Safety Report 21520228 (Version 2)
Quarter: 2022Q4

REPORT INFORMATION
  Report Type: Spontaneous
  Country: US (occurrence: US)
  Receive Date: 20221028
  Receipt Date: 20221101
  Transmission Date: 20230113
  Serious: No
  Sender: FDA-Public Use
  Company Number: US-PFIZER INC-202201258675

PATIENT
  Age: 62 Year
  Sex: Male
  Weight: 135.17 kg

DRUGS (1)
  1. PAXLOVID [Suspect]
     Active Substance: NIRMATRELVIR\RITONAVIR
     Indication: COVID-19 treatment
     Dosage: 3 DF, 2X/DAY (300MG, 100MG DOSE PACK;TAKE ALL 3 TABLETS AT SAME TIME; MORNING DOSE, EVENING DOSE)
     Dates: start: 20221024, end: 20221025

REACTIONS (6)
  - Dysgeusia [Not Recovered/Not Resolved]
  - Product taste abnormal [Unknown]
  - Diarrhoea [Unknown]
  - Insomnia [Unknown]
  - Vomiting [Unknown]
  - Nausea [Unknown]

NARRATIVE: CASE EVENT DATE: 20221001
